FAERS Safety Report 16590557 (Version 1)
Quarter: 2019Q3

REPORT INFORMATION
  Report Type: Spontaneous
  Country: US (occurrence: US)
  Receive Date: 20190604
  Receipt Date: 20190604
  Transmission Date: 20191004
  Serious: No
  Sender: FDA-Public Use
  Company Number: None

PATIENT
  Age: 58 Year
  Sex: Female

DRUGS (1)
  1. REPATHA [Suspect]
     Active Substance: EVOLOCUMAB
     Indication: ARTERIOSCLEROSIS CORONARY ARTERY
     Dates: start: 201905

REACTIONS (4)
  - Pulmonary congestion [None]
  - Nasopharyngitis [None]
  - Contusion [None]
  - Pyrexia [None]

NARRATIVE: CASE EVENT DATE: 20190604
